FAERS Safety Report 8314015-4 (Version None)
Quarter: 2012Q2

REPORT INFORMATION
  Report Type: 
  Country: None (occurrence: None)
  Receive Date: 20120426
  Receipt Date: 20110808
  Transmission Date: 20120825
  Serious: Yes (Other)
  Sender: FDA-Public Use
  Company Number: US-TEVA-US023284

PATIENT
  Sex: Female

DRUGS (7)
  1. PROVIGIL [Suspect]
     Indication: ATTENTION DEFICIT/HYPERACTIVITY DISORDER
     Dosage: 400 MILLIGRAM;
     Route: 048
  2. PROZAC [Concomitant]
     Route: 048
  3. ABILIFY [Concomitant]
     Route: 048
  4. PROVIGIL [Suspect]
     Indication: FATIGUE
  5. NEURONTIN [Concomitant]
     Route: 048
  6. LAMICTAL [Concomitant]
     Route: 048
  7. TOPAMAX [Concomitant]
     Route: 048

REACTIONS (7)
  - NAUSEA [None]
  - ABDOMINAL DISCOMFORT [None]
  - DISTURBANCE IN ATTENTION [None]
  - PAIN [None]
  - ANXIETY [None]
  - MANIA [None]
  - DRUG INEFFECTIVE FOR UNAPPROVED INDICATION [None]
